FAERS Safety Report 4485826-0 (Version None)
Quarter: 2004Q4

REPORT INFORMATION
  Report Type: 
  Country: None (occurrence: None)
  Receive Date: 20041026
  Receipt Date: 20040922
  Transmission Date: 20050328
  Serious: Yes (Hospitalization)
  Sender: FDA-Public Use
  Company Number: PHBS2004NO12579

PATIENT
  Age: 4 Year
  Sex: Male

DRUGS (1)
  1. TRILEPTAL [Suspect]
     Dosage: 30 MG, BID
     Route: 048
     Dates: start: 20040828, end: 20040828

REACTIONS (4)
  - ERYTHEMA [None]
  - PHOTOSENSITIVITY REACTION [None]
  - PRURITUS [None]
  - PYREXIA [None]
